FAERS Safety Report 8881222 (Version 2)
Quarter: 2012Q4

REPORT INFORMATION
  Report Type: 
  Country: AR (occurrence: AR)
  Receive Date: 20121031
  Receipt Date: 20121130
  Transmission Date: 20130627
  Serious: Yes (Other)
  Sender: FDA-Public Use
  Company Number: PHHY2012AR095623

PATIENT
  Age: 70 Year
  Sex: Male

DRUGS (1)
  1. ONBREZ [Suspect]
     Indication: EMPHYSEMA
     Dosage: 150 ug, QD

REACTIONS (4)
  - Arrhythmia [Recovered/Resolved]
  - Arthralgia [Not Recovered/Not Resolved]
  - Chest pain [Not Recovered/Not Resolved]
  - Oedema peripheral [Not Recovered/Not Resolved]
